FAERS Safety Report 8114746-5 (Version None)
Quarter: 2012Q1

REPORT INFORMATION
  Report Type: 
  Country: None (occurrence: None)
  Receive Date: 20120206
  Receipt Date: 20120202
  Transmission Date: 20120608
  Serious: Yes (Hospitalization)
  Sender: FDA-Public Use
  Company Number: US-TEVA-320709USA

PATIENT
  Sex: Female
  Weight: 51 kg

DRUGS (7)
  1. NEURONTIN [Concomitant]
  2. ACETAMINOPHEN [Concomitant]
  3. LOVENOX [Concomitant]
  4. SOLU-MEDROL [Concomitant]
  5. TREANDA [Suspect]
     Indication: B-CELL LYMPHOMA
     Route: 042
  6. PREDNISONE TAB [Concomitant]
  7. DILAUDID [Concomitant]

REACTIONS (5)
  - MYALGIA [None]
  - RHABDOMYOLYSIS [None]
  - ASTHENIA [None]
  - URINE COLOUR ABNORMAL [None]
  - FATIGUE [None]
